FAERS Safety Report 10607339 (Version 1)
Quarter: 2014Q4

REPORT INFORMATION
  Report Type: Spontaneous
  Country: US (occurrence: None)
  Receive Date: 20141124
  Receipt Date: 20141124
  Transmission Date: 20150529
  Serious: Yes (Hospitalization)
  Sender: FDA-Public Use
  Company Number: None

PATIENT
  Age: 63 Year
  Sex: Male
  Weight: 136.4 kg

DRUGS (12)
  1. WARFARIN [Suspect]
     Active Substance: WARFARIN
     Indication: ATRIAL FIBRILLATION
     Dosage: 15MG  MWF  PO?RECENT
     Route: 048
  2. VANCOMYCIN [Suspect]
     Active Substance: VANCOMYCIN
     Indication: INFECTION
     Dosage: 2000MG  Q12HR  IVPB?RECENT
  3. NEXIUM [Concomitant]
     Active Substance: ESOMEPRAZOLE MAGNESIUM
  4. TIKOSYN [Concomitant]
     Active Substance: DOFETILIDE
  5. ULTRAM [Concomitant]
     Active Substance: TRAMADOL HYDROCHLORIDE
  6. METFORMIN [Concomitant]
     Active Substance: METFORMIN HYDROCHLORIDE
  7. KLOR-CON [Concomitant]
     Active Substance: POTASSIUM CHLORIDE
  8. ASPIRIN. [Concomitant]
     Active Substance: ASPIRIN
  9. LASIX [Concomitant]
     Active Substance: FUROSEMIDE
  10. ATIVAN [Concomitant]
     Active Substance: LORAZEPAM
  11. DILTIAZEM [Concomitant]
     Active Substance: DILTIAZEM
  12. GABAPENTIN. [Concomitant]
     Active Substance: GABAPENTIN

REACTIONS (12)
  - Acute kidney injury [None]
  - Wound complication [None]
  - Tubulointerstitial nephritis [None]
  - Limb injury [None]
  - Joint injury [None]
  - Cellulitis [None]
  - Haematoma [None]
  - Skin exfoliation [None]
  - Proteus test positive [None]
  - Eschar [None]
  - Blood blister [None]
  - Skin necrosis [None]

NARRATIVE: CASE EVENT DATE: 20140417
